FAERS Safety Report 9292992 (Version 3)
Quarter: 2013Q2

REPORT INFORMATION
  Report Type: Spontaneous
  Country: DE (occurrence: DE)
  Receive Date: 20130516
  Receipt Date: 20130627
  Transmission Date: 20140414
  Serious: Yes (Other)
  Sender: FDA-Public Use
  Company Number: DE-GE HEALTHCARE MEDICAL DIAGNOSTICS-VISP-NO-1305S-0618

PATIENT
  Age: 72 Year
  Sex: Female
  Weight: 90 kg

DRUGS (3)
  1. VISIPAQUE [Suspect]
     Indication: CALCULUS URINARY
     Route: 042
     Dates: start: 20130426, end: 20130426
  2. VISIPAQUE [Suspect]
     Indication: IRRITABLE BOWEL SYNDROME
  3. VISIPAQUE [Suspect]
     Indication: DIAGNOSTIC PROCEDURE

REACTIONS (2)
  - Nausea [Recovered/Resolved]
  - Palpitations [Recovered/Resolved]
